FAERS Safety Report 10254350 (Version 2)
Quarter: 2014Q2

REPORT INFORMATION
  Report Type: Spontaneous
  Country: US (occurrence: US)
  Receive Date: 20140624
  Receipt Date: 20140624
  Transmission Date: 20141212
  Serious: Yes (Other)
  Sender: FDA-Public Use
  Company Number: US-JNJCP-30000225253

PATIENT
  Age: 51 Year
  Sex: Female

DRUGS (2)
  1. JOHNSONS BABY PRODUCTS [Suspect]
     Route: 061
  2. SHOWER TO SHOWER TALCUM PRODUCT [Suspect]
     Route: 061

REACTIONS (1)
  - Ovarian cancer [Unknown]
